FAERS Safety Report 6765954-7 (Version None)
Quarter: 2010Q2

REPORT INFORMATION
  Report Type: 
  Country: None (occurrence: None)
  Receive Date: 20100609
  Receipt Date: 20100526
  Transmission Date: 20101027
  Serious: Yes (Other)
  Sender: FDA-Public Use
  Company Number: VAL_00425_2010

PATIENT
  Age: 58 Year
  Sex: Male

DRUGS (2)
  1. ROCALTROL [Suspect]
     Indication: CALCIUM METABOLISM DISORDER
     Dosage: 1 RG DAILY ORAL
     Route: 048
  2. CALCIUM LACTATE (CALCIUM LACTATE) [Suspect]
     Indication: MEDICAL DIET
     Dosage: 1 G QD ORAL
     Route: 048

REACTIONS (2)
  - DIZZINESS [None]
  - ORTHOSTATIC HYPOTENSION [None]
